FAERS Safety Report 4949922-3 (Version None)
Quarter: 2006Q1

REPORT INFORMATION
  Report Type: 
  Country: None (occurrence: None)
  Receive Date: 20060127
  Receipt Date: 20050406
  Transmission Date: 20060701
  Serious: Yes (Hospitalization, Other)
  Sender: FDA-Public Use
  Company Number: 05-04-0576

PATIENT
  Age: 34 Year
  Sex: Female

DRUGS (4)
  1. CLOZAPINE [Suspect]
     Indication: PSYCHOTIC DISORDER
     Dosage: 250MG QHS, ORAL;  100MG  QAM, ORAL
     Route: 048
     Dates: start: 20050225, end: 20050331
  2. CLOZAPINE [Suspect]
     Indication: SCHIZOPHRENIA
     Dosage: 250MG QHS, ORAL;  100MG  QAM, ORAL
     Route: 048
     Dates: start: 20050225, end: 20050331
  3. CLOZAPINE [Suspect]
     Indication: PSYCHOTIC DISORDER
     Dosage: 250MG QHS, ORAL;  100MG  QAM, ORAL
     Route: 048
     Dates: start: 20050316, end: 20050331
  4. CLOZAPINE [Suspect]
     Indication: SCHIZOPHRENIA
     Dosage: 250MG QHS, ORAL;  100MG  QAM, ORAL
     Route: 048
     Dates: start: 20050316, end: 20050331

REACTIONS (1)
  - GRANULOCYTOPENIA [None]
